FAERS Safety Report 7738642-8 (Version None)
Quarter: 2011Q3

REPORT INFORMATION
  Report Type: 
  Country: None (occurrence: None)
  Receive Date: 20110908
  Receipt Date: 20110907
  Transmission Date: 20111222
  Serious: Yes (Hospitalization)
  Sender: FDA-Public Use
  Company Number: FR-ABBOTT-11P-056-0852373-00

PATIENT
  Sex: Female
  Weight: 53 kg

DRUGS (8)
  1. FENOFIBRATE [Suspect]
     Indication: HYPERCHOLESTEROLAEMIA
     Route: 048
     Dates: start: 20090101, end: 20110601
  2. ATORVASTATIN CALCIUM [Suspect]
     Indication: HYPERCHOLESTEROLAEMIA
     Route: 048
     Dates: start: 20110601
  3. KETOPROFEN [Suspect]
     Indication: MYALGIA
     Route: 061
     Dates: start: 20110701, end: 20110801
  4. FLECTOR [Suspect]
     Indication: MYALGIA
     Route: 061
     Dates: start: 20110701, end: 20110801
  5. FLECTOR [Suspect]
     Indication: SCIATICA
  6. KETOPROFEN [Suspect]
     Indication: SCIATICA
  7. FENOFIBRATE [Suspect]
     Dates: start: 20110809
  8. VALSARTAN  AND HYDROCHLOROTHIAZIDE [Concomitant]
     Indication: PRODUCT USED FOR UNKNOWN INDICATION

REACTIONS (6)
  - PAIN IN EXTREMITY [None]
  - SCIATICA [None]
  - RENAL FAILURE ACUTE [None]
  - INTERVERTEBRAL DISC PROTRUSION [None]
  - BLOOD CREATINE PHOSPHOKINASE INCREASED [None]
  - MYALGIA [None]
